FAERS Safety Report 12125707 (Version 1)
Quarter: 2016Q1

REPORT INFORMATION
  Report Type: Spontaneous
  Country: US (occurrence: None)
  Receive Date: 20160226
  Receipt Date: 20160226
  Transmission Date: 20160526
  Serious: Yes (Hospitalization)
  Sender: FDA-Public Use
  Company Number: None

PATIENT
  Age: 60 Year
  Sex: Male
  Weight: 84.82 kg

DRUGS (14)
  1. DOCUSATE SODIUM. [Concomitant]
     Active Substance: DOCUSATE SODIUM
  2. SEENOSIDES [Concomitant]
  3. AGGRENOX [Concomitant]
     Active Substance: ASPIRIN\DIPYRIDAMOLE
  4. PROGREF [Concomitant]
  5. METOPROLOL. [Concomitant]
     Active Substance: METOPROLOL
  6. AMLODIPINE [Concomitant]
     Active Substance: AMLODIPINE BESYLATE
  7. PANTOPRAZOLE [Concomitant]
     Active Substance: PANTOPRAZOLE SODIUM
  8. LIDOCAINE PATCH [Concomitant]
     Active Substance: LIDOCAINE
  9. URSODIOL. [Concomitant]
     Active Substance: URSODIOL
  10. ZOVIRAX [Concomitant]
     Active Substance: ACYCLOVIR
  11. MULTIVITAMIN [Concomitant]
     Active Substance: VITAMINS
  12. MYCOPHENOLATE [Concomitant]
     Active Substance: MYCOPHENOLIC ACID
  13. OXYCODONE [Concomitant]
     Active Substance: OXYCODONE
  14. HARVONI [Suspect]
     Active Substance: LEDIPASVIR\SOFOSBUVIR
     Indication: HEPATITIS C
     Dosage: 90/400MG 1XDAILY ORAL
     Route: 048
     Dates: start: 20150609, end: 20151204

REACTIONS (1)
  - Bile duct stenosis [None]

NARRATIVE: CASE EVENT DATE: 20150922
